FAERS Safety Report 6976395-1 (Version None)
Quarter: 2010Q3

REPORT INFORMATION
  Report Type: 
  Country: None (occurrence: None)
  Receive Date: 20100910
  Receipt Date: 20090420
  Transmission Date: 20110219
  Serious: No
  Sender: FDA-Public Use
  Company Number: US-WYE-H09070409

PATIENT
  Sex: Female
  Weight: 46.76 kg

DRUGS (3)
  1. PRISTIQ [Suspect]
     Indication: DEPRESSION
     Route: 048
     Dates: start: 20090417, end: 20090419
  2. LEVONORGESTREL + ETHINYL ESTRADIOL [Concomitant]
  3. ADDERALL 10 [Concomitant]

REACTIONS (6)
  - DIZZINESS [None]
  - DYSPNOEA [None]
  - FATIGUE [None]
  - HEADACHE [None]
  - ORTHOSTATIC HYPOTENSION [None]
  - SOMNOLENCE [None]
